FAERS Safety Report 4956473-9 (Version None)
Quarter: 2006Q1

REPORT INFORMATION
  Report Type: 
  Country: None (occurrence: None)
  Receive Date: 20060329
  Receipt Date: 20060317
  Transmission Date: 20060701
  Serious: Yes (Other)
  Sender: FDA-Public Use
  Company Number: DE-BRISTOL-MYERS SQUIBB COMPANY-13320288

PATIENT
  Age: 47 Year
  Sex: Female
  Weight: 99 kg

DRUGS (4)
  1. ABILIFY [Suspect]
     Indication: SCHIZOPHRENIA
     Dates: start: 20040811, end: 20040901
  2. AGGRENOX [Concomitant]
  3. ADALAT [Concomitant]
  4. L-THYROXINE [Concomitant]

REACTIONS (1)
  - RESTLESSNESS [None]
